FAERS Safety Report 12111267 (Version 1)
Quarter: 2016Q1

REPORT INFORMATION
  Report Type: Report from Study
  Country: AU (occurrence: AU)
  Receive Date: 20160224
  Receipt Date: 20160224
  Transmission Date: 20160526
  Serious: Yes (Other)
  Sender: FDA-Public Use
  Company Number: AU-ABBVIE-15P-008-1487409-00

PATIENT
  Sex: Female

DRUGS (1)
  1. HUMIRA [Suspect]
     Active Substance: ADALIMUMAB
     Indication: CROHN^S DISEASE
     Dosage: 1X40MG/FN (+CD LOADING DOSES)
     Route: 065
     Dates: start: 20151016

REACTIONS (4)
  - Foetal death [Unknown]
  - Exposure during pregnancy [Unknown]
  - Ectopic pregnancy [Unknown]
  - Abortion spontaneous [Unknown]
